FAERS Safety Report 6675175-4 (Version None)
Quarter: 2010Q2

REPORT INFORMATION
  Report Type: 
  Country: None (occurrence: None)
  Receive Date: 20100407
  Receipt Date: 20100324
  Transmission Date: 20101027
  Serious: Yes (Other)
  Sender: FDA-Public Use
  Company Number: 1000012162

PATIENT
  Age: 65 Year
  Sex: Male
  Weight: 75 kg

DRUGS (11)
  1. ESCITALOPRAM [Suspect]
     Indication: MAJOR DEPRESSION
     Dosage: 10 MG (10 MG, 1 IN 1 D), ORAL; 20 MG (20 MG, 1 IN 1 D), ORAL; 30 MG (30 MG, 1 IN 1 D),ORAL
     Route: 048
     Dates: start: 20091214, end: 20091221
  2. ESCITALOPRAM [Suspect]
     Indication: MAJOR DEPRESSION
     Dosage: 10 MG (10 MG, 1 IN 1 D), ORAL; 20 MG (20 MG, 1 IN 1 D), ORAL; 30 MG (30 MG, 1 IN 1 D),ORAL
     Route: 048
     Dates: start: 20091222, end: 20100217
  3. ESCITALOPRAM [Suspect]
     Indication: MAJOR DEPRESSION
     Dosage: 10 MG (10 MG, 1 IN 1 D), ORAL; 20 MG (20 MG, 1 IN 1 D), ORAL; 30 MG (30 MG, 1 IN 1 D),ORAL
     Route: 048
     Dates: start: 20100218
  4. PLAVIX [Concomitant]
  5. ASPIRIN [Concomitant]
  6. CRESTOR [Concomitant]
  7. NEXIUM [Concomitant]
  8. TANAKAN [Concomitant]
  9. PRAXILENE [Concomitant]
  10. LYSANXIA [Concomitant]
  11. TERCIAN [Concomitant]

REACTIONS (5)
  - DEPRESSION [None]
  - DISEASE RECURRENCE [None]
  - OVERDOSE [None]
  - PHOBIA [None]
  - SUICIDAL IDEATION [None]
